FAERS Safety Report 8057246-3 (Version None)
Quarter: 2012Q1

REPORT INFORMATION
  Report Type: 
  Country: None (occurrence: None)
  Receive Date: 20120119
  Receipt Date: 20120116
  Transmission Date: 20120608
  Serious: Yes (Death, Hospitalization, Other)
  Sender: FDA-Public Use
  Company Number: PHHY2011AU112033

PATIENT
  Sex: Female

DRUGS (2)
  1. CHEMOTHERAPEUTICS [Concomitant]
     Dosage: UNK UKN, UNK
  2. ZOLEDRONOC ACID [Suspect]
     Dosage: 5 MG, UNK
     Route: 042

REACTIONS (14)
  - DEATH [None]
  - VOMITING [None]
  - OESOPHAGEAL CARCINOMA [None]
  - MALNUTRITION [None]
  - ARTHRALGIA [None]
  - RESPIRATORY DISORDER [None]
  - ASPIRATION [None]
  - DEPRESSION [None]
  - ANAEMIA OF CHRONIC DISEASE [None]
  - REGURGITATION [None]
  - NECK PAIN [None]
  - OESOPHAGEAL STENOSIS [None]
  - NAUSEA [None]
  - MUSCULOSKELETAL PAIN [None]
